FAERS Safety Report 7319460-1 (Version None)
Quarter: 2011Q1

REPORT INFORMATION
  Report Type: 
  Country: None (occurrence: None)
  Receive Date: 20110228
  Receipt Date: 20100402
  Transmission Date: 20110831
  Serious: No
  Sender: FDA-Public Use
  Company Number: A0853220A

PATIENT
  Age: 54 Year
  Sex: Male

DRUGS (6)
  1. LAMICTAL [Suspect]
     Indication: BIPOLAR DISORDER
     Route: 048
     Dates: start: 20100301
  2. XANAX [Concomitant]
  3. DEPAKOTE ER [Concomitant]
  4. BUPROPION SR [Concomitant]
  5. SIMVASTATIN [Concomitant]
  6. METOPROLOL SUCCINATE EXTENDED RELEASE [Concomitant]

REACTIONS (2)
  - URTICARIA [None]
  - RASH [None]
